FAERS Safety Report 5764928-2 (Version None)
Quarter: 2008Q2

REPORT INFORMATION
  Report Type: 
  Country: None (occurrence: None)
  Receive Date: 20080611
  Receipt Date: 20080530
  Transmission Date: 20081010
  Serious: Yes (Other)
  Sender: FDA-Public Use
  Company Number: A0731997A

PATIENT
  Age: 60 Year
  Sex: Female

DRUGS (9)
  1. ADVAIR DISKUS 100/50 [Suspect]
     Indication: ASTHMA
     Route: 048
     Dates: start: 20080525
  2. LASIX [Concomitant]
  3. POTASSIUM CHLORIDE [Concomitant]
  4. NORVASC [Concomitant]
  5. AVAPRO [Concomitant]
  6. ALLEGRA [Concomitant]
  7. ATENOLOL [Concomitant]
  8. PROVENTIL [Concomitant]
  9. METFORMIN HCL [Concomitant]

REACTIONS (11)
  - BACK PAIN [None]
  - BURNING SENSATION [None]
  - CHEST PAIN [None]
  - HYPOAESTHESIA [None]
  - MALAISE [None]
  - MYOCARDIAL INFARCTION [None]
  - NECK PAIN [None]
  - PAIN [None]
  - PAIN IN EXTREMITY [None]
  - PARAESTHESIA [None]
  - PHARMACEUTICAL PRODUCT COMPLAINT [None]
